FAERS Safety Report 7609654-X (Version None)
Quarter: 2011Q3

REPORT INFORMATION
  Report Type: 
  Country: None (occurrence: None)
  Receive Date: 20110714
  Receipt Date: 20110712
  Transmission Date: 20111222
  Serious: Yes (Hospitalization, Other)
  Sender: FDA-Public Use
  Company Number: JP-PFIZER INC-2011129079

PATIENT
  Age: 40 Year
  Sex: Female

DRUGS (2)
  1. VARENICLINE TARTRATE [Suspect]
     Indication: EX-TOBACCO USER
     Dosage: UNK
     Route: 048
     Dates: start: 20110501, end: 20110608
  2. VARENICLINE TARTRATE [Suspect]
     Dosage: 1 MG, 2X/DAY
     Route: 048
     Dates: start: 20110609, end: 20110610

REACTIONS (15)
  - AUTONOMIC NERVOUS SYSTEM IMBALANCE [None]
  - DIZZINESS [None]
  - ABDOMINAL PAIN [None]
  - ORTHOSTATIC HYPOTENSION [None]
  - VOMITING [None]
  - MUSCULAR WEAKNESS [None]
  - EYE MOVEMENT DISORDER [None]
  - DECREASED APPETITE [None]
  - NAUSEA [None]
  - BLOOD CREATINE PHOSPHOKINASE INCREASED [None]
  - DYSARTHRIA [None]
  - DIARRHOEA [None]
  - DIPLOPIA [None]
  - GAIT DISTURBANCE [None]
  - DEHYDRATION [None]
